FAERS Safety Report 7605211-X (Version None)
Quarter: 2011Q3

REPORT INFORMATION
  Report Type: 
  Country: None (occurrence: None)
  Receive Date: 20110712
  Receipt Date: 20110712
  Transmission Date: 20111222
  Serious: Yes (Hospitalization)
  Sender: FDA-Public Use
  Company Number: None

PATIENT
  Age: 51 Year
  Sex: Male

DRUGS (6)
  1. LOSARTAN POTASSIUM [Suspect]
     Indication: DIABETES MELLITUS
     Dosage: 50 MG EVERY DAY PO
     Route: 048
     Dates: start: 20100518, end: 20110301
  2. LOSARTAN POTASSIUM [Suspect]
     Indication: MICROALBUMINURIA
     Dosage: 50 MG EVERY DAY PO
     Route: 048
     Dates: start: 20100518, end: 20110301
  3. LOSARTAN POTASSIUM [Suspect]
     Indication: HYPERTENSION
     Dosage: 50 MG EVERY DAY PO
     Route: 048
     Dates: start: 20100518, end: 20110301
  4. LISINOPRIL [Suspect]
     Indication: HYPERTENSION
     Dosage: 40 MG EVERY DAY PO
     Route: 048
     Dates: start: 20030205, end: 20110301
  5. LISINOPRIL [Suspect]
     Indication: DIABETES MELLITUS
     Dosage: 40 MG EVERY DAY PO
     Route: 048
     Dates: start: 20030205, end: 20110301
  6. LISINOPRIL [Suspect]
     Indication: MICROALBUMINURIA
     Dosage: 40 MG EVERY DAY PO
     Route: 048
     Dates: start: 20030205, end: 20110301

REACTIONS (1)
  - ANGIOEDEMA [None]
